FAERS Safety Report 14512140 (Version 7)
Quarter: 2018Q3

REPORT INFORMATION
  Report Type: Report from Study
  Country: US (occurrence: US)
  Receive Date: 20180209
  Receipt Date: 20180814
  Transmission Date: 20181010
  Serious: Yes (Other)
  Sender: FDA-Public Use
  Company Number: US-PFIZER INC-2018039062

PATIENT
  Age: 90 Year
  Sex: Female

DRUGS (4)
  1. PROLIA [Concomitant]
     Active Substance: DENOSUMAB
     Indication: OSTEOPOROSIS
     Dosage: UNK, MONTHLY
  2. IBRANCE [Suspect]
     Active Substance: PALBOCICLIB
     Dosage: 125 MG, ONCE A DAY
     Route: 048
     Dates: start: 20180425, end: 20180620
  3. IBRANCE [Suspect]
     Active Substance: PALBOCICLIB
     Indication: BREAST CANCER METASTATIC
     Dosage: 125 MG, ONCE A DAY
     Route: 048
     Dates: start: 20171228, end: 20180314
  4. IBRANCE [Suspect]
     Active Substance: PALBOCICLIB
     Dosage: 100 MG, 1X/DAY
     Route: 048
     Dates: start: 20180705

REACTIONS (15)
  - Leukopenia [Unknown]
  - Platelet count decreased [Unknown]
  - Wheezing [Recovered/Resolved]
  - Fatigue [Unknown]
  - Hot flush [Unknown]
  - Therapeutic response unexpected [Recovered/Resolved]
  - Swelling [Recovering/Resolving]
  - Cellulitis [Recovering/Resolving]
  - Flatulence [Recovered/Resolved]
  - Renal impairment [Unknown]
  - Full blood count abnormal [Unknown]
  - Increased tendency to bruise [Unknown]
  - Energy increased [Recovered/Resolved]
  - Stasis dermatitis [Recovering/Resolving]
  - Skin discolouration [Not Recovered/Not Resolved]

NARRATIVE: CASE EVENT DATE: 2018
